FAERS Safety Report 7704690-7 (Version None)
Quarter: 2011Q3

REPORT INFORMATION
  Report Type: 
  Country: None (occurrence: None)
  Receive Date: 20110823
  Receipt Date: 20110817
  Transmission Date: 20111222
  Serious: Yes (Hospitalization)
  Sender: FDA-Public Use
  Company Number: PL-CEPHALON-2009008992

PATIENT
  Sex: Male
  Weight: 76 kg

DRUGS (1)
  1. FENTANYL CITRATE [Suspect]
     Indication: BREAKTHROUGH PAIN
     Route: 002
     Dates: start: 20090711, end: 20090728

REACTIONS (1)
  - TACHYCARDIA PAROXYSMAL [None]
